FAERS Safety Report 4575974-9 (Version None)
Quarter: 2005Q1

REPORT INFORMATION
  Report Type: 
  Country: None (occurrence: None)
  Receive Date: 20050209
  Receipt Date: 20040611
  Transmission Date: 20050727
  Serious: Yes (Death, Hospitalization)
  Sender: FDA-Public Use
  Company Number: CN-SANOFI-SYNTHELABO-F01200401359

PATIENT
  Sex: Female
  Weight: 49 kg

DRUGS (6)
  1. DEXAMETHASONE [Concomitant]
     Dosage: UNK
     Route: 065
     Dates: start: 20040421, end: 20040422
  2. LEUCOVORIN CALCIUM [Suspect]
     Route: 042
     Dates: start: 20040421, end: 20040422
  3. FLUOROURACIL [Suspect]
     Dosage: TOTAL DOSE: 1500 MG (400 MG/M2 IV BOLUS AND 600 MG/M2 AS IV CONTINUOUS INFUSION, Q2W)
     Route: 042
     Dates: start: 20040421, end: 20040422
  4. OXALIPLATIN [Suspect]
     Route: 042
     Dates: start: 20040421, end: 20040421
  5. DIPHENHYDRAMINE HCL [Concomitant]
     Dosage: UNK
     Route: 065
     Dates: start: 20040421, end: 20040421
  6. ONDANSETRON [Concomitant]
     Dosage: UNK
     Route: 065
     Dates: start: 20040421, end: 20040422

REACTIONS (3)
  - GASTROINTESTINAL HAEMORRHAGE [None]
  - LARGE INTESTINAL ULCER [None]
  - SHOCK HAEMORRHAGIC [None]
